FAERS Safety Report 6986609-X (Version None)
Quarter: 2010Q3

REPORT INFORMATION
  Report Type: 
  Country: None (occurrence: None)
  Receive Date: 20100915
  Receipt Date: 20090721
  Transmission Date: 20110219
  Serious: No
  Sender: FDA-Public Use
  Company Number: US-WYE-H10247609

PATIENT
  Sex: Female
  Weight: 136.2 kg

DRUGS (2)
  1. PRISTIQ [Suspect]
     Route: 048
     Dates: start: 20090601
  2. PRILOSEC [Interacting]
     Dosage: UNKNOWN
     Route: 065

REACTIONS (3)
  - ANXIETY [None]
  - DRUG INTERACTION [None]
  - DYSPEPSIA [None]
